FAERS Safety Report 19650853 (Version 3)
Quarter: 2021Q3

REPORT INFORMATION
  Report Type: Report from Study
  Country: None (occurrence: BR)
  Receive Date: 20210802
  Receipt Date: 20210905
  Transmission Date: 20211014
  Serious: Yes (Hospitalization)
  Sender: FDA-Public Use
  Company Number: BR-ABBVIE-21K-020-4017342-00

PATIENT
  Age: 64 Year
  Sex: Male
  Weight: 79 kg

DRUGS (7)
  1. COVID?19 VACCINE [Concomitant]
     Dosage: UNSPECIFIC DOSE?ASTRAZENECA
     Route: 030
     Dates: start: 2021, end: 2021
  2. DIOVAN [Concomitant]
     Active Substance: VALSARTAN
     Indication: HYPERTENSION
     Dosage: UNSPECIFIED DOSE
  3. ZYLORIC [Concomitant]
     Active Substance: ALLOPURINOL
     Indication: BLOOD URIC ACID
     Dosage: UNSPECIFIC DOSE
  4. SKYRIZI [Suspect]
     Active Substance: RISANKIZUMAB-RZAA
     Indication: PSORIASIS
     Dosage: UNSPECIFIED DOSE
     Route: 058
     Dates: start: 2020, end: 2021
  5. COVID?19 VACCINE [Concomitant]
     Indication: COVID-19 IMMUNISATION
     Dosage: UNSPECIFIC DOSE?ASTRAZENECA
     Route: 030
     Dates: start: 2021, end: 2021
  6. PLENANCE [Concomitant]
     Active Substance: ROSUVASTATIN
     Indication: PRODUCT USED FOR UNKNOWN INDICATION
     Dosage: UNSPECIFIED DOSE
  7. GALVUS [Concomitant]
     Active Substance: VILDAGLIPTIN
     Indication: DIABETES MELLITUS
     Dosage: UNSPECIFIED DOSE

REACTIONS (1)
  - Urinary tract infection [Recovered/Resolved]

NARRATIVE: CASE EVENT DATE: 20210724
